FAERS Safety Report 5928900-1 (Version None)
Quarter: 2008Q4

REPORT INFORMATION
  Report Type: 
  Country: None (occurrence: None)
  Receive Date: 20081021
  Receipt Date: 20081008
  Transmission Date: 20090506
  Serious: Yes (Other)
  Sender: FDA-Public Use
  Company Number: BR-GDP-08404640

PATIENT
  Sex: Female
  Weight: 70 kg

DRUGS (1)
  1. BENZAC (BENZOYL PEROXIDE) 5 % [Suspect]
     Indication: ACNE
     Dosage: 1 DF QD TOPICAL
     Route: 061
     Dates: start: 20080905, end: 20080906

REACTIONS (1)
  - DRUG HYPERSENSITIVITY [None]
